FAERS Safety Report 8522703-X (Version None)
Quarter: 2012Q3

REPORT INFORMATION
  Report Type: 
  Country: None (occurrence: None)
  Receive Date: 20120719
  Receipt Date: 20120712
  Transmission Date: 20120928
  Serious: Yes (Congenital Anomaly)
  Sender: FDA-Public Use
  Company Number: US-GLAXOSMITHKLINE-A0985065A

PATIENT
  Sex: Male
  Weight: 3.1 kg

DRUGS (2)
  1. PAXIL [Suspect]
     Indication: PRODUCT USED FOR UNKNOWN INDICATION
     Route: 064
  2. NIFEDIPINE [Concomitant]

REACTIONS (2)
  - TRANSPOSITION OF THE GREAT VESSELS [None]
  - FOETAL EXPOSURE DURING PREGNANCY [None]
